FAERS Safety Report 19608016 (Version 3)
Quarter: 2021Q3

REPORT INFORMATION
  Report Type: Spontaneous
  Country: US (occurrence: US)
  Receive Date: 20210726
  Receipt Date: 20210902
  Transmission Date: 20211014
  Serious: No
  Sender: FDA-Public Use
  Company Number: US-GLAXOSMITHKLINE-US2021156409

PATIENT
  Sex: Female

DRUGS (3)
  1. FLOVENT HFA [Suspect]
     Active Substance: FLUTICASONE PROPIONATE
  2. FLOVENT HFA [Suspect]
     Active Substance: FLUTICASONE PROPIONATE
     Indication: PRODUCT USED FOR UNKNOWN INDICATION
     Dosage: UNK 100 MCG
  3. FLOVENT HFA [Suspect]
     Active Substance: FLUTICASONE PROPIONATE
     Indication: PRODUCT USED FOR UNKNOWN INDICATION
     Dosage: 2 PUFF(S), BID,110 MCG
     Route: 055

REACTIONS (11)
  - Underdose [Unknown]
  - Pain in extremity [Unknown]
  - Hip arthroplasty [Unknown]
  - Device physical property issue [Unknown]
  - Hypertension [Unknown]
  - Tooth extraction [Unknown]
  - Insomnia [Unknown]
  - Product dose omission issue [Unknown]
  - Product complaint [Unknown]
  - Dyspnoea [Unknown]
  - Wrong technique in product usage process [Unknown]
